FAERS Safety Report 7486406-5 (Version None)
Quarter: 2011Q2

REPORT INFORMATION
  Report Type: 
  Country: None (occurrence: None)
  Receive Date: 20110517
  Receipt Date: 20110429
  Transmission Date: 20111010
  Serious: No
  Sender: FDA-Public Use
  Company Number: US-B.I. PHARMACEUTICALS,INC./RIDGEFIELD-2011-BP-09018BP

PATIENT
  Sex: Male

DRUGS (5)
  1. COREG [Concomitant]
     Indication: ATRIAL FIBRILLATION
  2. SULAR [Concomitant]
     Indication: HYPERTENSION
  3. BICALUTAMIDE [Concomitant]
  4. ISOSORBIDE DINITRATE [Concomitant]
     Indication: HYPERTENSION
  5. PRADAXA [Suspect]
     Indication: ATRIAL FIBRILLATION
     Dosage: 150 MG
     Route: 048
     Dates: start: 20110315, end: 20110323

REACTIONS (3)
  - NAUSEA [None]
  - ERUCTATION [None]
  - DYSPEPSIA [None]
